FAERS Safety Report 22646085 (Version 1)
Quarter: 2023Q2

REPORT INFORMATION
  Report Type: Spontaneous
  Country: US (occurrence: US)
  Receive Date: 20230627
  Receipt Date: 20230627
  Transmission Date: 20230722
  Serious: No
  Sender: FDA-Public Use
  Company Number: US-AMGEN-USASP2023108220

PATIENT
  Age: 76 Year
  Sex: Female
  Weight: 98.883 kg

DRUGS (3)
  1. REPATHA [Suspect]
     Active Substance: EVOLOCUMAB
     Indication: Blood cholesterol increased
     Dosage: UNK
     Route: 065
     Dates: start: 202303, end: 202303
  2. FLONASE [Concomitant]
     Active Substance: FLUTICASONE PROPIONATE
  3. BAYER ASPIRIN [Concomitant]
     Active Substance: ASPIRIN
     Indication: Back pain
     Dosage: 500 MILLIGRAM, BID

REACTIONS (3)
  - Malaise [Unknown]
  - Blood pressure increased [Not Recovered/Not Resolved]
  - Heart rate increased [Recovered/Resolved]

NARRATIVE: CASE EVENT DATE: 20230301
